FAERS Safety Report 18087871 (Version 3)
Quarter: 2020Q3

REPORT INFORMATION
  Report Type: Spontaneous
  Country: CZ (occurrence: CZ)
  Receive Date: 20200729
  Receipt Date: 20200818
  Transmission Date: 20201103
  Serious: Yes (Hospitalization, Other)
  Sender: FDA-Public Use
  Company Number: CZ-MYLANLABS-2020M1068567

PATIENT
  Age: 75 Year
  Sex: Female

DRUGS (5)
  1. APIXABAN [Concomitant]
     Active Substance: APIXABAN
     Indication: ATRIAL FIBRILLATION
     Dosage: UNK
     Route: 065
  2. KLACID                             /00984601/ [Concomitant]
     Active Substance: CLARITHROMYCIN
     Indication: PNEUMONIA
     Dosage: 500 MILLIGRAM, BID(500 MG, Q12H)
     Route: 065
  3. AMOKSIKLAV                         /00852501/ [Concomitant]
     Active Substance: AMOXICILLIN\CLAVULANIC ACID
     Indication: PNEUMONIA
     Dosage: 625 MILLIGRAM, Q8H
     Route: 065
  4. APIXABAN [Concomitant]
     Active Substance: APIXABAN
     Indication: ANTICOAGULANT THERAPY
  5. AMIODARONE [Suspect]
     Active Substance: AMIODARONE
     Indication: ATRIAL FIBRILLATION
     Dosage: 200 MILLIGRAM, QD (WEEKEND PAUSE)
     Route: 048

REACTIONS (14)
  - Pulmonary toxicity [Recovered/Resolved]
  - Corneal deposits [Unknown]
  - Dyspnoea [Unknown]
  - Hypoventilation [Unknown]
  - Interstitial lung disease [Unknown]
  - Obstructive airways disorder [Recovered/Resolved]
  - Pulmonary function test decreased [Recovered/Resolved]
  - Asthma [Recovered/Resolved]
  - Pneumonia [Recovered/Resolved]
  - Inflammation [Recovered/Resolved]
  - Pyrexia [Recovered/Resolved]
  - Dyspnoea at rest [Unknown]
  - Breath sounds abnormal [Recovered/Resolved]
  - Cornea verticillata [Unknown]

NARRATIVE: CASE EVENT DATE: 201808
